FAERS Safety Report 9581202 (Version 2)
Quarter: 2013Q4

REPORT INFORMATION
  Report Type: Report from Study
  Country: JP (occurrence: JP)
  Receive Date: 20131002
  Receipt Date: 20131002
  Transmission Date: 20140711
  Serious: Yes (Hospitalization)
  Sender: FDA-Public Use
  Company Number: JP-TAKEDA-TCI2013A05008

PATIENT
  Age: 69 Year
  Sex: Male
  Weight: 61 kg

DRUGS (18)
  1. NESINA TABLETS 25MG [Suspect]
     Route: 048
     Dates: start: 20120529, end: 20120625
  2. NESINA TABLETS 25MG [Suspect]
     Route: 048
     Dates: start: 20130208
  3. CALSLOT [Concomitant]
     Route: 048
  4. CALSLOT [Concomitant]
     Route: 048
  5. AMARYL [Concomitant]
     Indication: TYPE 2 DIABETES MELLITUS
     Route: 048
  6. AMARYL [Concomitant]
     Route: 048
  7. SELOKEN L [Concomitant]
     Route: 048
  8. SELOKEN L [Concomitant]
     Route: 048
  9. TANATRIL [Concomitant]
     Route: 048
  10. TANATRIL [Concomitant]
     Route: 048
  11. DIOVAN [Concomitant]
     Route: 048
  12. DIOVAN [Concomitant]
     Route: 048
  13. NATRIX [Concomitant]
     Route: 048
  14. NATRIX [Concomitant]
     Route: 048
  15. CARDENALIN [Concomitant]
     Route: 048
  16. CARDENALIN [Concomitant]
     Route: 048
  17. LIPITOR [Concomitant]
     Route: 048
  18. LIPITOR [Concomitant]
     Route: 048

REACTIONS (1)
  - Renal impairment [Recovered/Resolved]
